FAERS Safety Report 10017114 (Version 16)
Quarter: 2015Q4

REPORT INFORMATION
  Report Type: Report from Study
  Country: CA (occurrence: CA)
  Receive Date: 20140318
  Receipt Date: 20151020
  Transmission Date: 20160304
  Serious: Yes (Death, Hospitalization, Other)
  Sender: FDA-Public Use
  Company Number: CA-ROCHE-1128824

PATIENT
  Age: 76 Year
  Sex: Female
  Weight: 42 kg

DRUGS (17)
  1. PLAQUENIL [Concomitant]
     Active Substance: HYDROXYCHLOROQUINE SULFATE
  2. VENTOLIN [Concomitant]
     Active Substance: ALBUTEROL SULFATE
  3. ACTONEL [Concomitant]
     Active Substance: RISEDRONATE SODIUM
  4. ACTEMRA [Suspect]
     Active Substance: TOCILIZUMAB
     Indication: RHEUMATOID ARTHRITIS
     Route: 042
     Dates: start: 20101216
  5. LYRICA [Concomitant]
     Active Substance: PREGABALIN
     Route: 048
  6. TOBRAMYCIN. [Concomitant]
     Active Substance: TOBRAMYCIN
  7. PANTOLOC [Concomitant]
     Active Substance: PANTOPRAZOLE SODIUM
  8. TYLENOL [Concomitant]
     Active Substance: ACETAMINOPHEN
     Dosage: AS CONCOMITTANT MEDICATION
     Route: 065
  9. LYRICA [Concomitant]
     Active Substance: PREGABALIN
     Route: 048
  10. TYLENOL [Concomitant]
     Active Substance: ACETAMINOPHEN
     Indication: PREMEDICATION
     Dosage: AS PREMEDICATION TO RITUXIMAB
     Route: 048
     Dates: start: 20090929, end: 20100512
  11. FOLIC ACID. [Concomitant]
     Active Substance: FOLIC ACID
  12. BENADRYL [Concomitant]
     Active Substance: DIPHENHYDRAMINE HYDROCHLORIDE
     Indication: PREMEDICATION
     Dosage: AS A PREMEDICATION TO RITUXIMAB
     Route: 048
     Dates: start: 20090929, end: 20100512
  13. METHOTREXATE [Concomitant]
     Active Substance: METHOTREXATE
  14. CETIRIZINE [Concomitant]
     Active Substance: CETIRIZINE HYDROCHLORIDE
  15. ACTEMRA [Suspect]
     Active Substance: TOCILIZUMAB
     Route: 042
     Dates: start: 20140908
  16. RITUXAN [Suspect]
     Active Substance: RITUXIMAB
     Indication: RHEUMATOID ARTHRITIS
     Dosage: DAY 1 TO DAY 15
     Route: 042
     Dates: start: 20090119, end: 20100512
  17. CELEBREX [Concomitant]
     Active Substance: CELECOXIB

REACTIONS (32)
  - Abdominal pain [Unknown]
  - Poor peripheral circulation [Recovering/Resolving]
  - Bronchitis [Recovered/Resolved]
  - Weight decreased [Unknown]
  - Nausea [Unknown]
  - Frequent bowel movements [Unknown]
  - Laryngitis [Unknown]
  - Post-traumatic pain [Not Recovered/Not Resolved]
  - Gastritis [Recovered/Resolved]
  - Dyspepsia [Unknown]
  - Arthralgia [Not Recovered/Not Resolved]
  - Musculoskeletal stiffness [Not Recovered/Not Resolved]
  - Burning sensation [Not Recovered/Not Resolved]
  - Pain in extremity [Unknown]
  - Dizziness [Unknown]
  - Pain [Unknown]
  - Arthralgia [Not Recovered/Not Resolved]
  - Rheumatoid arthritis [Unknown]
  - Erythema [Not Recovered/Not Resolved]
  - Back pain [Unknown]
  - Death [Fatal]
  - Sinusitis [Recovered/Resolved]
  - Movement disorder [Not Recovered/Not Resolved]
  - Haemorrhage [Not Recovered/Not Resolved]
  - Arthralgia [Unknown]
  - Oxygen saturation decreased [Not Recovered/Not Resolved]
  - Limb injury [Not Recovered/Not Resolved]
  - Infusion related reaction [Unknown]
  - Oxygen saturation decreased [Unknown]
  - Blood pressure systolic increased [Unknown]
  - Blood pressure increased [Unknown]
  - Headache [Unknown]

NARRATIVE: CASE EVENT DATE: 201207
